FAERS Safety Report 14172226 (Version 1)
Quarter: 2017Q4

REPORT INFORMATION
  Report Type: Report from Study
  Country: None (occurrence: AT)
  Receive Date: 20171109
  Receipt Date: 20171109
  Transmission Date: 20180321
  Serious: Yes (Death, Hospitalization)
  Sender: FDA-Public Use
  Company Number: AT-ABBVIE-17K-009-2155965-00

PATIENT
  Sex: Female

DRUGS (1)
  1. DUODOPA [Suspect]
     Active Substance: CARBIDOPA\LEVODOPA
     Indication: PARKINSON^S DISEASE
     Dosage: 16 H THERAPY. MD: 6.5 ML??CR DAYTIME: 2.6 ML7H??ED: 1.0 ML
     Route: 050
     Dates: start: 20101201

REACTIONS (3)
  - Circulatory collapse [Fatal]
  - Death [Fatal]
  - Cardiovascular insufficiency [Fatal]
